FAERS Safety Report 10923863 (Version 1)
Quarter: 2015Q1

REPORT INFORMATION
  Report Type: Spontaneous
  Country: US (occurrence: None)
  Receive Date: 20150316
  Receipt Date: 20150316
  Transmission Date: 20150721
  Serious: No
  Sender: FDA-Public Use
  Company Number: None

PATIENT
  Age: 51 Year
  Sex: Female
  Weight: 72.58 kg

DRUGS (23)
  1. DULOXETINE 60 MG [Suspect]
     Active Substance: DULOXETINE
     Indication: ANXIETY
     Dosage: 1 CAPSULE ONCE DAILY TAKEN BY MOUTH
     Route: 048
     Dates: start: 20150223, end: 20150223
  2. COQ10 [Concomitant]
     Active Substance: UBIDECARENONE
  3. GINKO BILOBA [Concomitant]
     Active Substance: GINKGO
  4. DULOXETINE 60 MG [Suspect]
     Active Substance: DULOXETINE
     Indication: DEPRESSION
     Dosage: 1 CAPSULE ONCE DAILY TAKEN BY MOUTH
     Route: 048
     Dates: start: 20150223, end: 20150223
  5. CYCLOBENZAPRINE [Concomitant]
     Active Substance: CYCLOBENZAPRINE
  6. CITALOPRAM [Suspect]
     Active Substance: CITALOPRAM HYDROBROMIDE
     Indication: DEPRESSION
     Dosage: 1 PILL ONCE DAILY TAKEN BY MOUTH
     Route: 048
     Dates: start: 20150304, end: 20150314
  7. CITALOPRAM [Suspect]
     Active Substance: CITALOPRAM HYDROBROMIDE
     Indication: ANXIETY
     Dosage: 1 PILL ONCE DAILY TAKEN BY MOUTH
     Route: 048
     Dates: start: 20150304, end: 20150314
  8. VITAMIN E [Concomitant]
     Active Substance: .ALPHA.-TOCOPHEROL
  9. CITALOPRAM [Suspect]
     Active Substance: CITALOPRAM HYDROBROMIDE
     Indication: FIBROMYALGIA
     Dosage: 1 PILL ONCE DAILY TAKEN BY MOUTH
     Route: 048
     Dates: start: 20150304, end: 20150314
  10. CITALOPRAM [Concomitant]
     Active Substance: CITALOPRAM HYDROBROMIDE
  11. ESTRADIOL. [Concomitant]
     Active Substance: ESTRADIOL
  12. S-ADENOSYLMETHIONINE SULFATE P-TOLUENESULFONATE [Concomitant]
     Active Substance: ADEMETIONINE SULFATE TOSILATE
  13. EXCEDRIN [Concomitant]
     Active Substance: ACETAMINOPHEN\ASPIRIN\CAFFEINE
  14. DULOXETINE 60 MG [Suspect]
     Active Substance: DULOXETINE
     Indication: FIBROMYALGIA
     Dosage: 1 CAPSULE ONCE DAILY TAKEN BY MOUTH
     Route: 048
     Dates: start: 20150223, end: 20150223
  15. DULOXETINE 60 MG [Suspect]
     Active Substance: DULOXETINE
     Indication: ADVERSE DRUG REACTION
     Dosage: 1 CAPSULE ONCE DAILY TAKEN BY MOUTH
     Route: 048
     Dates: start: 20150223, end: 20150223
  16. LORAZAPAM [Concomitant]
     Active Substance: LORAZEPAM
  17. CALCIUM/MAGNESIUM/ZINC [Concomitant]
  18. OMEPRAZOLE. [Concomitant]
     Active Substance: OMEPRAZOLE
  19. NAPROXEN. [Concomitant]
     Active Substance: NAPROXEN
  20. CINNAMON. [Concomitant]
     Active Substance: CINNAMON
  21. TYLENOL [Concomitant]
     Active Substance: ACETAMINOPHEN
  22. CLARITIN-D 12 HOUR [Concomitant]
     Active Substance: LORATADINE\PSEUDOEPHEDRINE SULFATE
  23. IBUPROFEN. [Concomitant]
     Active Substance: IBUPROFEN

REACTIONS (14)
  - Sinus headache [None]
  - Hyperacusis [None]
  - Tremor [None]
  - Muscle spasms [None]
  - Heart rate increased [None]
  - Insomnia [None]
  - Vision blurred [None]
  - Photophobia [None]
  - Dizziness [None]
  - Tendonitis [None]
  - Headache [None]
  - Nausea [None]
  - Paranasal sinus discomfort [None]
  - Toothache [None]

NARRATIVE: CASE EVENT DATE: 20150314
